FAERS Safety Report 9165349 (Version 1)
Quarter: 2013Q1

REPORT INFORMATION
  Report Type: Spontaneous
  Country: GB (occurrence: None)
  Receive Date: 20130228
  Receipt Date: 20130228
  Transmission Date: 20140127
  Serious: Yes (Disabling, Other)
  Sender: FDA-Public Use
  Company Number: GER/UKI/13/0028225

PATIENT
  Age: 43 Year
  Sex: Female
  Weight: 61.68 kg

DRUGS (1)
  1. CLOPIDOGREL (CLOPIDOGREL) [Suspect]
     Indication: CEREBROVASCULAR ACCIDENT
     Route: 048
     Dates: start: 20120915

REACTIONS (14)
  - Arthralgia [None]
  - Burning sensation [None]
  - Chest pain [None]
  - Pruritus [None]
  - Arthropathy [None]
  - Myalgia [None]
  - Rash [None]
  - Oral pain [None]
  - Oropharyngeal pain [None]
  - Abdominal pain upper [None]
  - Suicidal ideation [None]
  - Joint swelling [None]
  - Abasia [None]
  - Infection [None]
